FAERS Safety Report 14267801 (Version 1)
Quarter: 2017Q4

REPORT INFORMATION
  Report Type: Spontaneous
  Country: US (occurrence: US)
  Receive Date: 20171211
  Receipt Date: 20171211
  Transmission Date: 20180321
  Serious: Yes (Other)
  Sender: FDA-Public Use
  Company Number: None

PATIENT
  Age: 79 Year
  Sex: Male
  Weight: 71.1 kg

DRUGS (12)
  1. CLOPIDOGREL [Concomitant]
     Active Substance: CLOPIDOGREL BISULFATE
  2. ALLOPURINOL. [Concomitant]
     Active Substance: ALLOPURINOL
  3. TAMSULOSIN [Concomitant]
     Active Substance: TAMSULOSIN
  4. FINASTERIDE. [Concomitant]
     Active Substance: FINASTERIDE
  5. TELMISARTAN. [Concomitant]
     Active Substance: TELMISARTAN
  6. PIRIVA HANDIHALER [Concomitant]
  7. TARCEVA [Suspect]
     Active Substance: ERLOTINIB HYDROCHLORIDE
     Indication: LUNG NEOPLASM MALIGNANT
     Route: 048
     Dates: start: 20160425, end: 20171211
  8. ISOSORBIDE DINITRATE. [Concomitant]
     Active Substance: ISOSORBIDE DINITRATE
  9. SIMVASTATIN. [Concomitant]
     Active Substance: SIMVASTATIN
  10. LANO XIN [Concomitant]
  11. WARFARIN [Concomitant]
     Active Substance: WARFARIN
  12. BYSTOLIC [Concomitant]
     Active Substance: NEBIVOLOL HYDROCHLORIDE

REACTIONS (1)
  - Disease progression [None]
